FAERS Safety Report 25747488 (Version 1)
Quarter: 2025Q3

REPORT INFORMATION
  Report Type: Spontaneous
  Country: EU (occurrence: EU)
  Receive Date: 20250901
  Receipt Date: 20250901
  Transmission Date: 20251021
  Serious: Yes (Other)
  Sender: JOHNSON AND JOHNSON
  Company Number: EU-JNJFOC-20250832952

PATIENT
  Age: 51 Year
  Sex: Female

DRUGS (7)
  1. SPRAVATO [Suspect]
     Active Substance: ESKETAMINE
     Indication: Depression
     Route: 045
     Dates: start: 2025
  2. SPRAVATO [Suspect]
     Active Substance: ESKETAMINE
     Route: 045
  3. FLUOXETINE [Concomitant]
     Active Substance: FLUOXETINE HYDROCHLORIDE
     Indication: Product used for unknown indication
  4. BUPROPION [Concomitant]
     Active Substance: BUPROPION
     Indication: Product used for unknown indication
  5. PREGABALIN [Concomitant]
     Active Substance: PREGABALIN
     Indication: Product used for unknown indication
  6. LAMOTRIGINE [Concomitant]
     Active Substance: LAMOTRIGINE
     Indication: Product used for unknown indication
  7. LAVEKAN [Concomitant]
     Indication: Product used for unknown indication

REACTIONS (7)
  - Hallucinations, mixed [Recovered/Resolved]
  - Hypertension [Recovered/Resolved]
  - Paraesthesia [Recovered/Resolved]
  - Somnolence [Recovered/Resolved]
  - Headache [Recovered/Resolved]
  - Euphoric mood [Recovered/Resolved]
  - Panic attack [Unknown]

NARRATIVE: CASE EVENT DATE: 20250101
